FAERS Safety Report 19788690 (Version 2)
Quarter: 2022Q1

REPORT INFORMATION
  Report Type: Report from Study
  Country: US (occurrence: None)
  Receive Date: 20210904
  Receipt Date: 20220125
  Transmission Date: 20220424
  Serious: Yes (Death)
  Sender: FDA-Public Use
  Company Number: 2021A708764

PATIENT
  Age: 30971 Day
  Sex: Female

DRUGS (1)
  1. TAGRISSO [Suspect]
     Active Substance: OSIMERTINIB
     Route: 048
     Dates: start: 20210607, end: 20210729

REACTIONS (1)
  - Death [Fatal]

NARRATIVE: CASE EVENT DATE: 20210729
